FAERS Safety Report 23276637 (Version 1)
Quarter: 2023Q4

REPORT INFORMATION
  Report Type: Other
  Country: CN (occurrence: CN)
  Receive Date: 20231208
  Receipt Date: 20231208
  Transmission Date: 20240109
  Serious: Yes (Other)
  Sender: FDA-Public Use
  Company Number: CN-PARATEK PHARMACEUTICALS, INC.-2023PTK00661

PATIENT
  Age: 67 Year
  Sex: Male
  Weight: 70 kg

DRUGS (4)
  1. NUZYRA [Suspect]
     Active Substance: OMADACYCLINE
     Indication: Haematological infection
     Dosage: 0.3 G, 1X/DAY
     Route: 041
     Dates: start: 20231109, end: 20231115
  2. NUZYRA [Suspect]
     Active Substance: OMADACYCLINE
     Indication: Pneumonia
  3. POLYMYXIN [Concomitant]
     Active Substance: POLYMYXIN
     Indication: Haematological infection
  4. POLYMYXIN [Concomitant]
     Active Substance: POLYMYXIN
     Indication: Pneumonia

REACTIONS (2)
  - Incorrect dose administered [Recovered/Resolved]
  - Blood bilirubin increased [Unknown]

NARRATIVE: CASE EVENT DATE: 20231109
